FAERS Safety Report 10475442 (Version 1)
Quarter: 2014Q3

REPORT INFORMATION
  Report Type: Spontaneous
  Country: US (occurrence: None)
  Receive Date: 20140924
  Receipt Date: 20140924
  Transmission Date: 20150326
  Serious: No
  Sender: FDA-Public Use
  Company Number: None

PATIENT
  Age: 60 Year
  Sex: Female
  Weight: 102.51 kg

DRUGS (4)
  1. LOPRESSOR [Concomitant]
     Active Substance: METOPROLOL TARTRATE
  2. BABY ASP. [Concomitant]
  3. FLECAINIDE [Suspect]
     Active Substance: FLECAINIDE
     Indication: ATRIAL FIBRILLATION
     Dosage: 1/2 TAB  EVERY 12 HRS
     Route: 048
     Dates: start: 20140619, end: 20140812
  4. RAMIPRIL. [Concomitant]
     Active Substance: RAMIPRIL

REACTIONS (6)
  - Confusional state [None]
  - Unevaluable event [None]
  - Hyperhidrosis [None]
  - Middle insomnia [None]
  - Dizziness [None]
  - Angina pectoris [None]

NARRATIVE: CASE EVENT DATE: 20140619
